FAERS Safety Report 6407586-6 (Version None)
Quarter: 2009Q4

REPORT INFORMATION
  Report Type: 
  Country: None (occurrence: None)
  Receive Date: 20091020
  Receipt Date: 20091005
  Transmission Date: 20100525
  Serious: Yes (Other)
  Sender: FDA-Public Use
  Company Number: AT-GENENTECH-292188

PATIENT

DRUGS (1)
  1. AVASTIN [Suspect]
     Indication: MACULAR DEGENERATION
     Route: 031

REACTIONS (4)
  - CONJUNCTIVAL HAEMORRHAGE [None]
  - CONJUNCTIVAL HYPERAEMIA [None]
  - HYPERTENSION [None]
  - INTRAOCULAR PRESSURE INCREASED [None]
